FAERS Safety Report 15265203 (Version 2)
Quarter: 2018Q3

REPORT INFORMATION
  Report Type: Spontaneous
  Country: IT (occurrence: IT)
  Receive Date: 20180810
  Receipt Date: 20180816
  Transmission Date: 20181010
  Serious: Yes (Hospitalization, Other)
  Sender: FDA-Public Use
  Company Number: IT-GILEAD-2018-0354089

PATIENT
  Age: 59 Year
  Sex: Male

DRUGS (12)
  1. OLEVIA [Concomitant]
     Active Substance: OMEGA-3-ACID ETHYL ESTERS
  2. TRIATEC                            /00116401/ [Concomitant]
     Active Substance: ACETAMINOPHEN\CODEINE PHOSPHATE
  3. REZOLSTA [Concomitant]
     Active Substance: COBICISTAT\DARUNAVIR ETHANOLATE
     Route: 048
  4. LANTUS [Concomitant]
     Active Substance: INSULIN GLARGINE
  5. TRUVADA [Suspect]
     Active Substance: EMTRICITABINE\TENOFOVIR DISOPROXIL FUMARATE
     Indication: PRODUCT USED FOR UNKNOWN INDICATION
     Dosage: UNK UNKNOWN, UNK
     Route: 065
  6. HUMALOG [Concomitant]
     Active Substance: INSULIN LISPRO
  7. HUMALOG [Concomitant]
     Active Substance: INSULIN LISPRO
  8. REZOLSTA [Concomitant]
     Active Substance: COBICISTAT\DARUNAVIR ETHANOLATE
     Indication: HIV INFECTION
     Route: 048
  9. KCL RETARD ZYMA [Concomitant]
     Active Substance: POTASSIUM CHLORIDE
  10. ISENTRESS [Concomitant]
     Active Substance: RALTEGRAVIR POTASSIUM
     Route: 048
  11. EPCLUSA [Suspect]
     Active Substance: SOFOSBUVIR\VELPATASVIR
     Indication: HEPATITIS C
     Dosage: 1 DF, QD
     Route: 048
     Dates: start: 20170907, end: 20171201
  12. ISENTRESS [Concomitant]
     Active Substance: RALTEGRAVIR POTASSIUM
     Indication: HIV INFECTION
     Route: 048

REACTIONS (1)
  - Hepatitis B reactivation [Recovering/Resolving]

NARRATIVE: CASE EVENT DATE: 20180401
